FAERS Safety Report 6726350-1 (Version None)
Quarter: 2010Q2

REPORT INFORMATION
  Report Type: 
  Country: None (occurrence: None)
  Receive Date: 20100514
  Receipt Date: 20100505
  Transmission Date: 20101027
  Serious: Yes (Other)
  Sender: FDA-Public Use
  Company Number: A0844504A

PATIENT
  Age: 19 Year
  Sex: Female

DRUGS (4)
  1. LAMICTAL [Suspect]
     Dosage: 100MG TWICE PER DAY
     Route: 048
     Dates: start: 20081001
  2. CELEXA [Suspect]
     Indication: DEPRESSION
     Dosage: 20MG PER DAY
     Route: 048
     Dates: start: 20091008, end: 20091011
  3. RELPAX [Concomitant]
  4. SEASONALE [Concomitant]

REACTIONS (5)
  - CONVULSION [None]
  - DISORIENTATION [None]
  - LOSS OF CONSCIOUSNESS [None]
  - MIGRAINE [None]
  - SOMNOLENCE [None]
